FAERS Safety Report 5884964-5 (Version None)
Quarter: 2008Q3

REPORT INFORMATION
  Report Type: 
  Country: None (occurrence: None)
  Receive Date: 20080916
  Receipt Date: 20080909
  Transmission Date: 20090109
  Serious: Yes (Other)
  Sender: FDA-Public Use
  Company Number: B0536140A

PATIENT
  Age: 70 Year
  Sex: Male

DRUGS (7)
  1. SERETIDE [Suspect]
     Indication: ASTHMA
     Dosage: 1PUFF TWICE PER DAY
     Route: 055
  2. VENTOLIN [Suspect]
     Indication: ASTHMA
     Dosage: 100MCG AS REQUIRED
     Route: 055
  3. CANDESARTAN [Suspect]
     Indication: HYPERTENSION
     Dosage: 16MG PER DAY
  4. DIPYRIDAMOLE [Suspect]
     Indication: THROMBOSIS PROPHYLAXIS
     Dosage: 200MG PER DAY
  5. FELODIPINE [Suspect]
     Indication: HYPERTENSION
     Dosage: 5MG PER DAY
  6. IPRATROPIUM BROMIDE [Suspect]
     Indication: ASTHMA
     Dosage: 20MCG TWICE PER DAY
     Route: 055
  7. SIMVASTATIN [Suspect]
     Dosage: 20MG PER DAY

REACTIONS (2)
  - ASTHMA [None]
  - FEELING ABNORMAL [None]
